FAERS Safety Report 8457637-2 (Version None)
Quarter: 2012Q2

REPORT INFORMATION
  Report Type: 
  Country: None (occurrence: None)
  Receive Date: 20120622
  Receipt Date: 20111123
  Transmission Date: 20120825
  Serious: No
  Sender: FDA-Public Use
  Company Number: US-BAYER-2011-113988

PATIENT
  Sex: Female

DRUGS (2)
  1. MAGNEVIST [Suspect]
     Dosage: 13 ML, ONCE
  2. SALINE [Concomitant]
     Dosage: 5 ML, UNK

REACTIONS (1)
  - VOMITING [None]
